FAERS Safety Report 11560104 (Version 2)
Quarter: 2015Q4

REPORT INFORMATION
  Report Type: Spontaneous
  Country: HU (occurrence: HU)
  Receive Date: 20150928
  Receipt Date: 20151022
  Transmission Date: 20160304
  Serious: Yes (Hospitalization, Other)
  Sender: FDA-Public Use
  Company Number: HU-ACTELION-A-CH2015-124460

PATIENT
  Age: 12 Year
  Sex: Female
  Weight: 48.5 kg

DRUGS (6)
  1. TRACLEER [Suspect]
     Active Substance: BOSENTAN
     Dosage: 62.5 MG, BID
     Route: 048
     Dates: start: 201303, end: 201504
  2. FUROSEMID [Concomitant]
     Active Substance: FUROSEMIDE
     Dosage: 10 MG, QD
     Route: 048
  3. PANANGIN [Concomitant]
     Active Substance: MAGNESIUM ASPARTATE\POTASSIUM ASPARTATE
  4. RUTASCORBIN [Concomitant]
     Dosage: UNK, BID
     Route: 048
  5. MALTOFER [Concomitant]
     Active Substance: IRON POLYMALTOSE
     Dosage: 100 MG, UNK
     Route: 048
  6. TRACLEER [Suspect]
     Active Substance: BOSENTAN
     Indication: PULMONARY ARTERIAL HYPERTENSION
     Dosage: 125 MG, BID
     Route: 048
     Dates: start: 201504

REACTIONS (4)
  - Haemorrhagic anaemia [Recovered/Resolved]
  - Haemoglobin decreased [Recovered/Resolved]
  - Oestrogen deficiency [Unknown]
  - Menorrhagia [Recovered/Resolved]

NARRATIVE: CASE EVENT DATE: 20150905
